FAERS Safety Report 10154825 (Version 1)
Quarter: 2014Q2

REPORT INFORMATION
  Report Type: Spontaneous
  Country: FR (occurrence: None)
  Receive Date: 20140502
  Receipt Date: 20140502
  Transmission Date: 20141212
  Serious: Yes (Other)
  Sender: FDA-Public Use
  Company Number: SYM-2014-20216

PATIENT
  Age: 72 Year
  Sex: Female

DRUGS (6)
  1. FLAGYL [Suspect]
     Indication: CLOSTRIDIUM DIFFICILE INFECTION
     Route: 048
     Dates: start: 20140121, end: 20140127
  2. ATARAX [Suspect]
     Indication: PRODUCT USED FOR UNKNOWN INDICATION
     Route: 048
     Dates: start: 20140124, end: 20140125
  3. SOLUPRED (PREDNISOLONE) (PREDNISOLONE) [Concomitant]
  4. PROGRAF (TACROLIMUS) (TACROLIMUS) [Concomitant]
  5. INEXIUM (ESOMEPRAZOLE MAGNESIUM) (ESOMEPRAZOLE MAGNESIUM) [Concomitant]
  6. CONTRAMAL (TRAMADOL HYDROCHLORIDE) (TRAMADOL HYDROCHLORIDE) [Concomitant]

REACTIONS (2)
  - Hallucination, visual [None]
  - Blood sodium decreased [None]
